FAERS Safety Report 8511748-1 (Version None)
Quarter: 2012Q3

REPORT INFORMATION
  Report Type: 
  Country: None (occurrence: None)
  Receive Date: 20120711
  Receipt Date: 20120711
  Transmission Date: 20120928
  Serious: Yes (Other)
  Sender: FDA-Public Use
  Company Number: None

PATIENT

DRUGS (1)
  1. BANANA BOAT SPORT PERFORMANCE COOL ZONE SUNSCREEN SPF 50+ [Suspect]
     Dates: start: 20120620, end: 20120620

REACTIONS (5)
  - BLISTER [None]
  - SUNBURN [None]
  - SKIN EXFOLIATION [None]
  - DRUG HYPERSENSITIVITY [None]
  - PRODUCT QUALITY ISSUE [None]
